FAERS Safety Report 5458152-0 (Version None)
Quarter: 2007Q3

REPORT INFORMATION
  Report Type: 
  Country: None (occurrence: None)
  Receive Date: 20070917
  Receipt Date: 20070911
  Transmission Date: 20080115
  Serious: Yes (Hospitalization)
  Sender: FDA-Public Use
  Company Number: 2007SP018217

PATIENT
  Age: 73 Year
  Sex: Male

DRUGS (8)
  1. NOXAFIL [Suspect]
     Indication: ASPERGILLOSIS
     Dosage: PO
     Route: 048
     Dates: start: 20070420, end: 20070424
  2. SOTALOL HCL [Concomitant]
  3. TARDIFERON [Concomitant]
  4. INEXIUM [Concomitant]
  5. ZYLORIC [Concomitant]
  6. SINTROM [Concomitant]
  7. MYOLASTAN [Concomitant]
  8. VORICONAZOLE [Concomitant]

REACTIONS (4)
  - CONDITION AGGRAVATED [None]
  - GASTROENTERITIS [None]
  - HYPERTENSION [None]
  - RENAL FAILURE CHRONIC [None]
